FAERS Safety Report 24778247 (Version 1)
Quarter: 2024Q4

REPORT INFORMATION
  Report Type: Spontaneous
  Country: US (occurrence: US)
  Receive Date: 20241226
  Receipt Date: 20241226
  Transmission Date: 20250114
  Serious: Yes (Hospitalization, Disabling, Other)
  Sender: NOVARTIS
  Company Number: US-002147023-NVSC2024US244397

PATIENT
  Age: 12 Year
  Sex: Female
  Weight: 26 kg

DRUGS (2)
  1. KYMRIAH [Suspect]
     Active Substance: TISAGENLECLEUCEL
     Indication: Acute lymphocytic leukaemia
     Dosage: 1 DOSAGE FORM, ONCE/SINGLE ((GREATER THAN 50KG, 0.1-2.5X10^8 CAR PLUS VIABLE TCELLS/KG)
     Route: 042
     Dates: start: 20241001, end: 20241001
  2. TRIAMCINOLONE [Suspect]
     Active Substance: TRIAMCINOLONE
     Indication: Product used for unknown indication
     Dosage: UNK (SUBTENON) (INJECTION)
     Route: 065

REACTIONS (14)
  - Retinal detachment [Recovering/Resolving]
  - Cytokine release syndrome [Unknown]
  - Tumour pseudoprogression [Unknown]
  - Leukaemic infiltration [Unknown]
  - Papilloedema [Recovering/Resolving]
  - Erythema of eyelid [Unknown]
  - Headache [Unknown]
  - Irritability [Unknown]
  - Decreased activity [Unknown]
  - Swelling of eyelid [Unknown]
  - Eyelid pain [Unknown]
  - Eye inflammation [Recovering/Resolving]
  - Pyrexia [Unknown]
  - Inflammation [Unknown]

NARRATIVE: CASE EVENT DATE: 20241003
